FAERS Safety Report 6693347-X (Version None)
Quarter: 2010Q2

REPORT INFORMATION
  Report Type: 
  Country: None (occurrence: None)
  Receive Date: 20100420
  Receipt Date: 20100405
  Transmission Date: 20101027
  Serious: Yes (Death, Other)
  Sender: FDA-Public Use
  Company Number: MC201000122

PATIENT

DRUGS (6)
  1. ANGIOMAX [Suspect]
     Indication: ANTIPLATELET THERAPY
     Dosage: 0.75 MG/KG, BOLUS, INTRAVENOUS
     Route: 040
  2. ANGIOMAX [Suspect]
     Dosage: 1.75 MG/KG, HR, INTRAVENOUS
     Route: 042
  3. ASPIRIN [Concomitant]
  4. CLOPIDOGREL [Concomitant]
  5. REOPRO [Concomitant]
  6. EPTIFIBATIDE (EPTIFIBATIDE) [Concomitant]

REACTIONS (7)
  - BLOOD CREATINE PHOSPHOKINASE MB INCREASED [None]
  - CARDIAC DEATH [None]
  - CORONARY REVASCULARISATION [None]
  - HAEMORRHAGE [None]
  - MYOCARDIAL INFARCTION [None]
  - THROMBOSIS IN DEVICE [None]
  - TROPONIN I INCREASED [None]
